FAERS Safety Report 5779637-3 (Version None)
Quarter: 2008Q2

REPORT INFORMATION
  Report Type: 
  Country: None (occurrence: None)
  Receive Date: 20080619
  Receipt Date: 20080613
  Transmission Date: 20081010
  Serious: Yes (Life-Threatening, Hospitalization, Other)
  Sender: FDA-Public Use
  Company Number: DE-PFIZER INC-2008049935

PATIENT
  Sex: Male

DRUGS (3)
  1. HUMATROPE [Suspect]
     Indication: GROWTH HORMONE DEFICIENCY
     Dosage: FREQ:8.40 MILLIGRAM/WEEK
  2. PROPRANOLOL HYDROCHLORIDE [Concomitant]
     Dates: start: 20020718, end: 20030930
  3. PROPRANOLOL HYDROCHLORIDE [Concomitant]
     Dates: start: 20071001, end: 20071121

REACTIONS (1)
  - ATRIAL FIBRILLATION [None]
